FAERS Safety Report 15364505 (Version 3)
Quarter: 2023Q1

REPORT INFORMATION
  Report Type: Spontaneous
  Country: BE (occurrence: BE)
  Receive Date: 20180909
  Receipt Date: 20230331
  Transmission Date: 20230417
  Serious: Yes (Hospitalization, Other)
  Sender: FDA-Public Use
  Company Number: PHHY2018BE092234

PATIENT
  Age: 48 Year
  Sex: Male
  Weight: 92 kg

DRUGS (32)
  1. DOXORUBICIN HYDROCHLORIDE [Suspect]
     Active Substance: DOXORUBICIN HYDROCHLORIDE
     Indication: Philadelphia positive acute lymphocytic leukaemia
     Dosage: UNK, REGIMEN 1
     Route: 065
     Dates: start: 20160419, end: 20160419
  2. DOXORUBICIN HYDROCHLORIDE [Suspect]
     Active Substance: DOXORUBICIN HYDROCHLORIDE
     Dosage: UNK, REGIMEN 2
     Route: 065
     Dates: start: 20160519, end: 20160519
  3. DOXORUBICIN HYDROCHLORIDE [Suspect]
     Active Substance: DOXORUBICIN HYDROCHLORIDE
     Dosage: UNK, REGIMEN 3
     Route: 065
     Dates: start: 20160609, end: 20160609
  4. CYCLOPHOSPHAMIDE [Suspect]
     Active Substance: CYCLOPHOSPHAMIDE
     Indication: Philadelphia positive acute lymphocytic leukaemia
     Dosage: UNK, REGIMEN 1
     Route: 065
     Dates: start: 20160419, end: 20160419
  5. CYCLOPHOSPHAMIDE [Suspect]
     Active Substance: CYCLOPHOSPHAMIDE
     Dosage: UNK, REGIMEN 2
     Route: 065
     Dates: start: 20160519, end: 20160519
  6. CYCLOPHOSPHAMIDE [Suspect]
     Active Substance: CYCLOPHOSPHAMIDE
     Dosage: UNK, REGIMEN 3
     Route: 065
     Dates: start: 20160609, end: 20160609
  7. DEXAMETHASONE [Suspect]
     Active Substance: DEXAMETHASONE
     Indication: Philadelphia positive acute lymphocytic leukaemia
     Dosage: UNK, REGIMEN 1
     Route: 065
     Dates: start: 20160419, end: 20160419
  8. DEXAMETHASONE [Suspect]
     Active Substance: DEXAMETHASONE
     Dosage: UNK, REGIMEN 2
     Route: 065
     Dates: start: 20160519, end: 20160519
  9. DEXAMETHASONE [Suspect]
     Active Substance: DEXAMETHASONE
     Dosage: UNK, REGIMEN 3
     Route: 065
     Dates: start: 20160609, end: 20160609
  10. CYTARABINE [Suspect]
     Active Substance: CYTARABINE
     Indication: Philadelphia positive acute lymphocytic leukaemia
     Dosage: UNK, REGIMEN 1
     Route: 065
     Dates: start: 20160419, end: 20160419
  11. CYTARABINE [Suspect]
     Active Substance: CYTARABINE
     Dosage: UNK, REGIMEN 2
     Route: 065
     Dates: start: 20160519, end: 20160519
  12. CYTARABINE [Suspect]
     Active Substance: CYTARABINE
     Dosage: UNK, REGIMEN 3
     Route: 065
     Dates: start: 20160609, end: 20160609
  13. METHYLPREDNISOLONE [Suspect]
     Active Substance: METHYLPREDNISOLONE
     Indication: Philadelphia positive acute lymphocytic leukaemia
     Dosage: UNK, REGIMEN 1
     Route: 065
     Dates: start: 20160419, end: 20160419
  14. METHYLPREDNISOLONE [Suspect]
     Active Substance: METHYLPREDNISOLONE
     Dosage: UNK, REGIMEN 2
     Route: 065
     Dates: start: 20160519, end: 20160519
  15. METHYLPREDNISOLONE [Suspect]
     Active Substance: METHYLPREDNISOLONE
     Dosage: UNK, REGIMEN 3
     Route: 065
     Dates: start: 20160609, end: 20160609
  16. METHOTREXATE SODIUM [Suspect]
     Active Substance: METHOTREXATE SODIUM
     Indication: Philadelphia positive acute lymphocytic leukaemia
     Dosage: UNK,  REGIMEN 1
     Route: 065
     Dates: start: 20160419, end: 20160419
  17. METHOTREXATE SODIUM [Suspect]
     Active Substance: METHOTREXATE SODIUM
     Dosage: UNK, REGIMEN 2
     Route: 065
     Dates: start: 20160519, end: 20160519
  18. METHOTREXATE SODIUM [Suspect]
     Active Substance: METHOTREXATE SODIUM
     Dosage: UNK, REGIMEN 3
     Route: 065
     Dates: start: 20160609, end: 20160609
  19. VINCRISTINE [Suspect]
     Active Substance: VINCRISTINE
     Indication: Philadelphia positive acute lymphocytic leukaemia
     Dosage: UNK, REGIMEN 1
     Route: 065
     Dates: start: 20160419, end: 20160419
  20. VINCRISTINE [Suspect]
     Active Substance: VINCRISTINE
     Dosage: UNK, REGIMEN 2
     Route: 065
     Dates: start: 20160519, end: 20160519
  21. VINCRISTINE [Suspect]
     Active Substance: VINCRISTINE
     Dosage: UNK, REGIMEN 3
     Route: 065
     Dates: start: 20160609, end: 20160609
  22. ICLUSIG [Suspect]
     Active Substance: PONATINIB
     Indication: Philadelphia positive acute lymphocytic leukaemia
     Dosage: 45 MG, QD (1X/DAY)
     Route: 048
     Dates: start: 20160426
  23. LEUCOVORIN [Suspect]
     Active Substance: LEUCOVORIN
     Indication: Philadelphia positive acute lymphocytic leukaemia
     Dosage: UNK, REGIMEN 1
     Route: 065
     Dates: start: 20160419, end: 20160419
  24. LEUCOVORIN [Suspect]
     Active Substance: LEUCOVORIN
     Dosage: UNK, REGIMEN 2
     Route: 065
     Dates: start: 20160519, end: 20160519
  25. LEUCOVORIN [Suspect]
     Active Substance: LEUCOVORIN
     Dosage: UNK, REGIMEN 3
     Route: 065
     Dates: start: 20160609, end: 20160609
  26. NEULASTA [Suspect]
     Active Substance: PEGFILGRASTIM
     Indication: Product used for unknown indication
     Dosage: 6 MG, QD (1X/DAY (6 MG/0.6 ML))
     Route: 065
     Dates: start: 20160529, end: 20161107
  27. RANITIDINE [Concomitant]
     Active Substance: RANITIDINE
     Indication: Product used for unknown indication
     Dosage: UNK
     Route: 065
     Dates: start: 20160412, end: 20161107
  28. PRIMPERAN [Concomitant]
     Active Substance: METOCLOPRAMIDE HYDROCHLORIDE
     Indication: Product used for unknown indication
     Dosage: UNK
     Route: 065
     Dates: end: 20161107
  29. PENTACARINAT [Concomitant]
     Active Substance: PENTAMIDINE ISETHIONATE
     Indication: Product used for unknown indication
     Dosage: UNK
     Route: 065
     Dates: end: 20160519
  30. ACYCLOVIR [Concomitant]
     Active Substance: ACYCLOVIR
     Indication: Product used for unknown indication
     Dosage: UNK
     Route: 065
     Dates: end: 20161107
  31. CALCIUM CARBONATE [Concomitant]
     Active Substance: CALCIUM CARBONATE
     Indication: Product used for unknown indication
     Dosage: UNK
     Route: 065
  32. CIALIS [Concomitant]
     Active Substance: TADALAFIL
     Indication: Product used for unknown indication
     Dosage: UNK
     Route: 065
     Dates: start: 20160412, end: 20161107

REACTIONS (3)
  - Inflammation [Recovered/Resolved]
  - Pyrexia [Recovered/Resolved]
  - Neutropenia [Recovered/Resolved]

NARRATIVE: CASE EVENT DATE: 20160614
